FAERS Safety Report 21770463 (Version 1)
Quarter: 2022Q4

REPORT INFORMATION
  Report Type: Spontaneous
  Country: TW (occurrence: TW)
  Receive Date: 20221223
  Receipt Date: 20221223
  Transmission Date: 20230113
  Serious: Yes (Life-Threatening)
  Sender: FDA-Public Use
  Company Number: TW-SUN PHARMACEUTICAL INDUSTRIES LTD-2022R1-369946

PATIENT
  Age: 77 Year
  Sex: Male

DRUGS (4)
  1. EPINEPHRINE [Suspect]
     Active Substance: EPINEPHRINE
     Indication: Prophylaxis
     Dosage: 0.3 MILLIGRAM
     Route: 030
  2. KETOROLAC [Suspect]
     Active Substance: KETOROLAC TROMETHAMINE
     Indication: Anaphylactic reaction
     Dosage: UNK, 30 MG
     Route: 065
  3. DIPHENHYDRAMINE [Suspect]
     Active Substance: DIPHENHYDRAMINE
     Indication: Anaphylactic reaction
     Dosage: 30 MG
     Route: 030
  4. HYDROCORTISONE [Suspect]
     Active Substance: HYDROCORTISONE
     Indication: Anaphylactic reaction
     Dosage: UNK, 200 MG
     Route: 065

REACTIONS (4)
  - Condition aggravated [Unknown]
  - Dyspnoea [Unknown]
  - Tachycardia [Unknown]
  - Oxygen saturation decreased [Unknown]
